FAERS Safety Report 8911432 (Version 2)
Quarter: 2012Q4

REPORT INFORMATION
  Report Type: 
  Country: US (occurrence: US)
  Receive Date: 20121115
  Receipt Date: 20121213
  Transmission Date: 20130627
  Serious: Yes (Hospitalization)
  Sender: FDA-Public Use
  Company Number: US-OPTIMER-20120154

PATIENT
  Age: 81 Year
  Sex: Male
  Weight: 83.9 kg

DRUGS (1)
  1. DIFICID [Suspect]
     Indication: CLOSTRIDIUM DIFFICILE COLITIS
     Dosage: 200 mg, bid
     Route: 048
     Dates: start: 201107, end: 2011

REACTIONS (3)
  - Pneumonia viral [Unknown]
  - Influenza like illness [Unknown]
  - Diarrhoea [Recovered/Resolved]
